FAERS Safety Report 6357210-6 (Version None)
Quarter: 2009Q3

REPORT INFORMATION
  Report Type: 
  Country: None (occurrence: None)
  Receive Date: 20090911
  Receipt Date: 20090901
  Transmission Date: 20100115
  Serious: Yes (Hospitalization)
  Sender: FDA-Public Use
  Company Number: TRP_06404_2009

PATIENT
  Sex: Female
  Weight: 74.8435 kg

DRUGS (3)
  1. RIBAVARIN [Suspect]
     Indication: HEPATITIS C
     Dosage: 1000 MG QD ORAL, 800 MG, A DAY ORAL
     Route: 048
     Dates: start: 20090619, end: 20090101
  2. RIBAVARIN [Suspect]
     Indication: HEPATITIS C
     Dosage: 1000 MG QD ORAL, 800 MG, A DAY ORAL
     Route: 048
     Dates: start: 20090101
  3. PEG-INTRON [Suspect]
     Indication: HEPATITIS C
     Dosage: DF SUBCUTANEOUS
     Route: 058
     Dates: start: 20090619

REACTIONS (7)
  - ANAEMIA [None]
  - AUTONOMIC SEIZURE [None]
  - DECREASED APPETITE [None]
  - DYSPNOEA [None]
  - HEADACHE [None]
  - NAUSEA [None]
  - WEIGHT DECREASED [None]
